FAERS Safety Report 8328927 (Version 8)
Quarter: 2014Q1

REPORT INFORMATION
  Report Type: Report from Study
  Country: GB (occurrence: GB)
  Receive Date: 20120110
  Receipt Date: 20140113
  Transmission Date: 20141002
  Serious: Yes (Life-Threatening, Hospitalization, Other)
  Sender: FDA-Public Use
  Company Number: GB-PFIZER INC-2011312036

PATIENT
  Age: 54 Year
  Sex: Male

DRUGS (31)
  1. METFORMIN HCL [Suspect]
     Indication: DIABETES MELLITUS MANAGEMENT
     Dosage: UNK
     Route: 048
     Dates: start: 2011, end: 20111209
  2. RAMIPRIL [Suspect]
     Indication: HYPERTENSION
     Dosage: UNK
     Route: 048
     Dates: start: 2011
  3. RAMIPRIL [Suspect]
     Indication: ACUTE CORONARY SYNDROME
  4. ACETYLSALICYLIC ACID [Concomitant]
     Indication: ANGINA PECTORIS
     Dosage: 75 MG, 1X/DAY
     Route: 048
  5. BISOPROLOL [Concomitant]
     Indication: HYPERTENSION
     Dosage: UNK
     Route: 048
  6. BISOPROLOL [Concomitant]
     Indication: ACUTE CORONARY SYNDROME
  7. FUROSEMIDE [Concomitant]
     Indication: HYPERTENSION
     Dosage: UNK
     Route: 048
     Dates: end: 20111209
  8. FUROSEMIDE [Concomitant]
     Indication: ACUTE CORONARY SYNDROME
  9. ATORVASTATIN [Concomitant]
     Indication: HYPERCHOLESTEROLAEMIA
     Dosage: UNK
     Route: 048
  10. GLYCERYL TRINITRATE [Concomitant]
     Indication: ANGINA PECTORIS
     Dosage: AS REQUIRED
     Route: 060
  11. HEPARIN [Concomitant]
     Indication: ANTICOAGULANT THERAPY
     Dosage: UNK
  12. SENNA [Concomitant]
     Dosage: UNK
     Dates: start: 20111211, end: 20111213
  13. SALINE MIXTURE [Concomitant]
     Dosage: UNK
     Dates: start: 20111211, end: 20111219
  14. CHLORHEXIDINE [Concomitant]
     Dosage: UNK
     Dates: start: 20111210, end: 20111216
  15. PARACETAMOL [Concomitant]
     Dosage: UNK
     Dates: start: 20111210, end: 20111217
  16. LITHIUM [Concomitant]
     Dosage: UNK
     Dates: start: 20111210, end: 20111213
  17. PROPOFOL [Concomitant]
     Dosage: UNK
     Dates: start: 20111213, end: 20111216
  18. ACTRAPID [Concomitant]
     Dosage: UNK
     Dates: start: 20111210, end: 20111216
  19. METOCLOPRAMIDE [Concomitant]
     Dosage: UNK
     Dates: start: 20111210, end: 20111217
  20. OCTENIDINE DIHYDROCHLORIDE/PROPANOL [Concomitant]
     Dosage: UNK
     Dates: start: 20111210, end: 20111221
  21. NORADRENALINE [Concomitant]
     Dosage: UNK
     Dates: start: 20111209, end: 20111213
  22. RANITIDINE [Concomitant]
     Dosage: UNK
     Dates: start: 20111210, end: 20111217
  23. METRONIDAZOLE [Concomitant]
     Dosage: UNK
     Dates: start: 20111210, end: 20111220
  24. LACTULOSE [Concomitant]
     Dosage: UNK
     Dates: start: 20111211, end: 20111214
  25. MUPIROCIN [Concomitant]
     Dosage: UNK
     Dates: start: 20111210, end: 20111221
  26. MEROPENEM [Concomitant]
     Dosage: UNK
     Dates: start: 20111210, end: 20111220
  27. HALOPERIDOL [Concomitant]
     Dosage: UNK
     Dates: start: 20111213, end: 20111216
  28. ENOXAPARIN [Concomitant]
     Dosage: UNK
     Dates: start: 20111210, end: 20111220
  29. HYDROCORTISONE [Concomitant]
     Dosage: UNK
     Dates: start: 20111210, end: 20111214
  30. ALFENTANIL [Concomitant]
     Dosage: UNK
     Dates: start: 20111209, end: 20111212
  31. CLOPIDOGREL [Concomitant]

REACTIONS (4)
  - Renal failure acute [Recovered/Resolved]
  - Lactic acidosis [Recovered/Resolved]
  - Toxicity to various agents [Recovered/Resolved]
  - Sepsis [Recovered/Resolved]
